FAERS Safety Report 24157555 (Version 1)
Quarter: 2024Q3

REPORT INFORMATION
  Report Type: Spontaneous
  Country: CN (occurrence: CN)
  Receive Date: 20240731
  Receipt Date: 20240731
  Transmission Date: 20241016
  Serious: Yes (Death, Other)
  Sender: MERCK
  Company Number: CN-009507513-2407CHN015728

PATIENT
  Sex: Female

DRUGS (3)
  1. TEMODAL [Suspect]
     Active Substance: TEMOZOLOMIDE
     Indication: Glioblastoma
     Dosage: 75MG/M2/D; QD (IN CONCURRENT PHASE)
     Route: 048
     Dates: start: 20201015
  2. TEMODAL [Suspect]
     Active Substance: TEMOZOLOMIDE
     Dosage: 150 MG/M2/ DAY, QD; (5 DAYS IN TOTAL IN CYCLE 1 DURING MAINTENANCE TREATMENT)
     Route: 048
  3. TEMODAL [Suspect]
     Active Substance: TEMOZOLOMIDE
     Dosage: 200 MG/M2/DAY, QD (IN CYCLE 2-6)
     Route: 048

REACTIONS (1)
  - Death [Fatal]

NARRATIVE: CASE EVENT DATE: 20240201
